FAERS Safety Report 6994287-9 (Version None)
Quarter: 2010Q3

REPORT INFORMATION
  Report Type: 
  Country: None (occurrence: None)
  Receive Date: 20100917
  Receipt Date: 20100907
  Transmission Date: 20110219
  Serious: Yes (Hospitalization, Other)
  Sender: FDA-Public Use
  Company Number: US-ELI_LILLY_AND_COMPANY-US201009003014

PATIENT
  Sex: Female

DRUGS (6)
  1. HUMALOG [Suspect]
     Indication: TYPE 2 DIABETES MELLITUS
     Dosage: 21 U, EACH MORNING
  2. HUMALOG [Suspect]
     Dosage: 12 U, DAILY (1/D)
  3. HUMALOG [Suspect]
     Dosage: 17 U, EACH EVENING
  4. HUMULIN N [Suspect]
     Indication: TYPE 2 DIABETES MELLITUS
     Dosage: 58 U, EACH EVENING
  5. METFORMIN [Concomitant]
  6. IRON [Concomitant]
     Indication: ANAEMIA

REACTIONS (6)
  - ANAEMIA [None]
  - COAGULOPATHY [None]
  - COOMBS DIRECT TEST POSITIVE [None]
  - DRUG EXPOSURE DURING PREGNANCY [None]
  - KIDNEY INFECTION [None]
  - THALASSAEMIA [None]
